FAERS Safety Report 8062274-8 (Version None)
Quarter: 2012Q1

REPORT INFORMATION
  Report Type: 
  Country: None (occurrence: None)
  Receive Date: 20120123
  Receipt Date: 20120109
  Transmission Date: 20120608
  Serious: Yes (Death, Other)
  Sender: FDA-Public Use
  Company Number: DE-CELGENEUS-062-21880-12010860

PATIENT
  Age: 59 Year
  Sex: Male

DRUGS (5)
  1. REVLIMID [Suspect]
     Route: 048
     Dates: end: 20111205
  2. DEXAMETHASONE TAB [Concomitant]
     Route: 065
  3. DIPYRONE TAB [Concomitant]
     Route: 065
  4. PANTOPRAZOLE [Concomitant]
     Route: 065
  5. ENOXAPARIN SODIUM [Concomitant]
     Route: 050

REACTIONS (1)
  - DEATH [None]
